FAERS Safety Report 17895555 (Version 2)
Quarter: 2020Q4

REPORT INFORMATION
  Report Type: Report from Study
  Country: US (occurrence: US)
  Receive Date: 20200615
  Receipt Date: 20201118
  Transmission Date: 20210113
  Serious: Yes (Hospitalization, Other)
  Sender: FDA-Public Use
  Company Number: US-PFIZER INC-2020227779

PATIENT
  Sex: Male

DRUGS (2)
  1. GEMCITABINE HYDROCHLORIDE. [Suspect]
     Active Substance: GEMCITABINE HYDROCHLORIDE
     Dosage: UNK UNK, CYCLIC TWO TIMES WEEKLY EVERY 4TH WEEK OFF FOR 16 WEEKS
  2. CISPLATIN. [Suspect]
     Active Substance: CISPLATIN
     Indication: BLADDER CANCER STAGE IV
     Dosage: UNK UNK, CYCLIC 2 TIMES WEEKLY, EVERY 4TH WEEK OFF FOR 16 WEEKS

REACTIONS (13)
  - Incontinence [Unknown]
  - Stress [Unknown]
  - Erectile dysfunction [Not Recovered/Not Resolved]
  - Male sexual dysfunction [Not Recovered/Not Resolved]
  - Headache [Unknown]
  - Alopecia [Unknown]
  - Insomnia [Unknown]
  - Anxiety [Unknown]
  - Red blood cell count decreased [Unknown]
  - Urinary tract infection [Unknown]
  - Constipation [Unknown]
  - Fatigue [Unknown]
  - Nausea [Recovered/Resolved]
